FAERS Safety Report 19611373 (Version 2)
Quarter: 2021Q3

REPORT INFORMATION
  Report Type: Report from Study
  Country: GB (occurrence: GB)
  Receive Date: 20210727
  Receipt Date: 20210810
  Transmission Date: 20211014
  Serious: No
  Sender: FDA-Public Use
  Company Number: GB-CELLTRION INC.-2021GB002781

PATIENT

DRUGS (19)
  1. DOCETAXEL. [Suspect]
     Active Substance: DOCETAXEL
     Indication: BREAST CANCER
     Dosage: 110 MG, EVERY 3 WEEKS (Q3W)
     Route: 042
     Dates: start: 20160609, end: 20160919
  2. PANTOPRAZOLE [Concomitant]
     Active Substance: PANTOPRAZOLE
     Indication: PRODUCT USED FOR UNKNOWN INDICATION
     Route: 065
  3. DOCETAXEL. [Suspect]
     Active Substance: DOCETAXEL
     Dosage: 140 MG, EVERY 3 WEEKS (Q3W)
     Route: 042
     Dates: start: 20160519, end: 20160519
  4. CHLORAMPHENICOL [Concomitant]
     Active Substance: CHLORAMPHENICOL
     Indication: PRODUCT USED FOR UNKNOWN INDICATION
     Dosage: 1 DRP ((DROP (1/12 MILLILITRE))
     Route: 047
     Dates: start: 201610
  5. OMEPRAZOLE. [Concomitant]
     Active Substance: OMEPRAZOLE
     Dosage: 20 MG, QD (PHARMACEUTICAL DOSE FORM:245)
     Route: 048
     Dates: start: 20160627
  6. PERTUZUMAB. [Suspect]
     Active Substance: PERTUZUMAB
     Indication: BREAST CANCER
     Dosage: 840 MG EVERY 3 WEEKS (Q3W)
     Route: 042
     Dates: start: 20160518, end: 20160518
  7. PERTUZUMAB. [Suspect]
     Active Substance: PERTUZUMAB
     Dosage: 420 MG EVERY 3 WEEKS (Q3W)
     Route: 042
     Dates: start: 20160608
  8. ONDANSETRON [Concomitant]
     Active Substance: ONDANSETRON
     Indication: PRODUCT USED FOR UNKNOWN INDICATION
     Dosage: 16 MG (PHARMACEUTICAL DOSE FORM:245)
     Route: 048
     Dates: start: 20160518
  9. ZOPICLONE [Concomitant]
     Active Substance: ZOPICLONE
     Indication: INSOMNIA
     Dosage: 11.25 MG, QD, (PHARMACEUTICAL DOSAGE FORM: 245)
     Route: 048
     Dates: start: 2016
  10. TRASTUZUMAB (UNKNOWN) [Suspect]
     Active Substance: TRASTUZUMAB
     Dosage: 588 MG, EVERY 3 WEEKS (Q3W) (PHARMACEUTICAL DOSE FORM: 230)
     Route: 042
     Dates: start: 20191114
  11. AMOXICILLIN. [Concomitant]
     Active Substance: AMOXICILLIN
     Dosage: 750 MG, (PHARMACSUTICAL DOSE FORM: 5)
     Route: 048
     Dates: start: 201701, end: 201701
  12. DOMPERIDONE [Concomitant]
     Active Substance: DOMPERIDONE
     Indication: PRODUCT USED FOR UNKNOWN INDICATION
     Dosage: 30 MG (PHARMACEUTICAL DOSAGE FORM: 245)
     Route: 048
     Dates: start: 20160518
  13. IMODIUM [Concomitant]
     Active Substance: LOPERAMIDE HYDROCHLORIDE
     Indication: PRODUCT USED FOR UNKNOWN INDICATION
     Dosage: 2 MG, PRN (AS NEEDED) (PHARMACEUTICAL DOSE FORM: 245)
     Route: 048
     Dates: start: 20160518
  14. TRASTUZUMAB (UNKNOWN) [Suspect]
     Active Substance: TRASTUZUMAB
     Indication: BREAST CANCER
     Dosage: 600 MG, EVERY 3 WEEKS (Q3W) (PHARMACEUTICAL DOSE FORM: 230)
     Route: 042
     Dates: start: 20160518
  15. BENZYDAMINE HYDROCHLORIDE [Concomitant]
     Active Substance: BENZYDAMINE HYDROCHLORIDE
     Dosage: 40 ML
     Route: 061
     Dates: start: 20160518
  16. OMEPRAZOLE. [Concomitant]
     Active Substance: OMEPRAZOLE
     Dosage: 20 MG, QD (PHARMACEUTICAL DOSE FORM:245)
     Route: 048
     Dates: start: 20160518
  17. PARACETAMOL [Concomitant]
     Active Substance: ACETAMINOPHEN
     Dosage: 1 G, PRN (AS NEEDED) (PHARMACEUTICAL DOSE FORM:245)
     Route: 048
     Dates: start: 20160518
  18. RANITIDINE. [Concomitant]
     Active Substance: RANITIDINE
     Dosage: 300 MG, QD (PHARMACEUTICAL DOSE FORM:245)
     Route: 048
     Dates: start: 20160518
  19. RENNIE [Concomitant]
     Dosage: 680 MG, PRN (AS NEEDED) (PHARMACEUTICAL DOSE FORM:245)
     Route: 048
     Dates: start: 20160516

REACTIONS (4)
  - Cystitis [Recovered/Resolved]
  - Lacrimation increased [Recovered/Resolved]
  - Insomnia [Recovered/Resolved]
  - Paraesthesia [Recovered/Resolved]

NARRATIVE: CASE EVENT DATE: 201608
